FAERS Safety Report 14456440 (Version 1)
Quarter: 2018Q1

REPORT INFORMATION
  Report Type: Spontaneous
  Country: US (occurrence: US)
  Receive Date: 20180130
  Receipt Date: 20180130
  Transmission Date: 20180509
  Serious: Yes (Other)
  Sender: FDA-Public Use
  Company Number: US-JNJFOC-20180120611

PATIENT
  Age: 58 Year
  Sex: Male
  Weight: 97.52 kg

DRUGS (1)
  1. BENADRYL ALLERGY LIQUI-GELS [Suspect]
     Active Substance: DIPHENHYDRAMINE HYDROCHLORIDE
     Indication: MULTIPLE ALLERGIES
     Dosage: 2 LIQUID GELS 3 TIMES (REPORTED AS ONCE YESTERDAY TWICE TODAY)
     Route: 065
     Dates: start: 20180115, end: 20180116

REACTIONS (1)
  - Blood glucose increased [Not Recovered/Not Resolved]

NARRATIVE: CASE EVENT DATE: 20180116
